FAERS Safety Report 6822957-1 (Version None)
Quarter: 2010Q3

REPORT INFORMATION
  Report Type: 
  Country: None (occurrence: None)
  Receive Date: 20100708
  Receipt Date: 20100629
  Transmission Date: 20110219
  Serious: Yes (Death, Hospitalization, Other)
  Sender: FDA-Public Use
  Company Number: A0858414A

PATIENT
  Age: 84 Year
  Sex: Male

DRUGS (7)
  1. VOTRIENT [Suspect]
     Indication: RENAL CELL CARCINOMA
     Route: 048
  2. NAMENDA [Concomitant]
  3. METOPROLOL [Concomitant]
  4. NORVASC [Concomitant]
  5. LEVEMIR [Concomitant]
  6. HUMALOG [Concomitant]
  7. ASPIRIN [Concomitant]

REACTIONS (3)
  - CONFUSIONAL STATE [None]
  - MENTAL STATUS CHANGES [None]
  - RENAL CANCER [None]
